FAERS Safety Report 25951142 (Version 2)
Quarter: 2025Q4

REPORT INFORMATION
  Report Type: Spontaneous
  Country: CR (occurrence: CR)
  Receive Date: 20251023
  Receipt Date: 20251105
  Transmission Date: 20260117
  Serious: Yes (Other)
  Sender: ROCHE
  Company Number: CR-ROCHE-10000412495

PATIENT
  Sex: Female

DRUGS (1)
  1. VABYSMO [Suspect]
     Active Substance: FARICIMAB-SVOA
     Indication: Diabetic retinal oedema
     Dosage: DOSE WAS NOT REPORTED
     Route: 050

REACTIONS (3)
  - Diabetic metabolic decompensation [Unknown]
  - Oedema [Unknown]
  - Inflammation [Unknown]
